FAERS Safety Report 20666393 (Version 1)
Quarter: 2022Q2

REPORT INFORMATION
  Report Type: Spontaneous
  Country: US (occurrence: US)
  Receive Date: 20220403
  Receipt Date: 20220403
  Transmission Date: 20220721
  Serious: No
  Sender: FDA-Public Use
  Company Number: US-SANOFI-01033776

PATIENT
  Sex: Male

DRUGS (2)
  1. LANTUS SOLOSTAR [Suspect]
     Active Substance: INSULIN GLARGINE
     Dosage: 1-2 UNITS, TID
  2. HUMALOG [Concomitant]
     Active Substance: INSULIN LISPRO

REACTIONS (6)
  - Pancreaticoduodenectomy [Unknown]
  - Weight decreased [Unknown]
  - Blood glucose increased [Unknown]
  - Product prescribing issue [Unknown]
  - Product use issue [Unknown]
  - Therapeutic response shortened [Unknown]
